FAERS Safety Report 8976524 (Version 2)
Quarter: 2013Q3

REPORT INFORMATION
  Report Type: Report from Study
  Country: GB (occurrence: GB)
  Receive Date: 20121220
  Receipt Date: 20130703
  Transmission Date: 20140515
  Serious: Yes (Hospitalization)
  Sender: FDA-Public Use
  Company Number: GB-JNJFOC-20121208518

PATIENT
  Age: 61 Year
  Sex: Female
  Weight: 71 kg

DRUGS (14)
  1. REMICADE [Suspect]
     Indication: RHEUMATOID ARTHRITIS
     Route: 042
     Dates: start: 20031208, end: 20050427
  2. METHOTREXATE [Concomitant]
     Indication: RHEUMATOID ARTHRITIS
     Route: 030
  3. CYCLOSPORINE [Concomitant]
     Indication: RHEUMATOID ARTHRITIS
     Route: 048
  4. CYCLOSPORINE [Concomitant]
     Indication: RHEUMATOID ARTHRITIS
     Route: 048
  5. NABUMETONE [Concomitant]
     Route: 048
  6. FUROSEMIDE [Concomitant]
     Route: 048
  7. PERINDOPRIL [Concomitant]
     Route: 048
  8. ATORVASTATIN [Concomitant]
     Route: 048
  9. FOLIC ACID [Concomitant]
     Route: 048
  10. LANSOPRAZOLE [Concomitant]
     Route: 048
  11. SERETIDE [Concomitant]
     Dosage: 2 PUFFS
     Route: 065
  12. VENTOLIN [Concomitant]
     Dosage: 2 PUFFS
     Route: 065
  13. GTN [Concomitant]
     Dosage: 1-2 PUFFS
     Route: 065
  14. PARACETAMOL [Concomitant]
     Route: 048

REACTIONS (1)
  - Bladder neoplasm [Recovered/Resolved]
